FAERS Safety Report 8223742-9 (Version None)
Quarter: 2012Q1

REPORT INFORMATION
  Report Type: 
  Country: None (occurrence: None)
  Receive Date: 20120321
  Receipt Date: 20120313
  Transmission Date: 20120608
  Serious: Yes (Other)
  Sender: FDA-Public Use
  Company Number: DE-UCBSA-053373

PATIENT
  Age: 29 Year
  Sex: Female

DRUGS (3)
  1. LAMOTRIGINE [Suspect]
     Indication: EPILEPSY
     Dosage: (225-225-250) FOR TWO YEARS
     Route: 048
  2. VIMPAT [Suspect]
     Indication: EPILEPSY
     Route: 048
  3. FOLSAURE [Concomitant]
     Indication: PROPHYLAXIS OF NEURAL TUBE DEFECT
     Route: 048
     Dates: end: 20100201

REACTIONS (3)
  - CONVULSION [None]
  - PREGNANCY [None]
  - CAESAREAN SECTION [None]
